FAERS Safety Report 6236174-X (Version None)
Quarter: 2009Q2

REPORT INFORMATION
  Report Type: 
  Country: None (occurrence: None)
  Receive Date: 20090619
  Receipt Date: 20090609
  Transmission Date: 20091009
  Serious: Yes (Other)
  Sender: FDA-Public Use
  Company Number: FR-PFIZER INC-2009224683

PATIENT
  Age: 56 Year

DRUGS (1)
  1. LYRICA [Suspect]
     Indication: SCIATICA
     Dosage: 75 MG, 2X/DAY

REACTIONS (2)
  - ARTHRALGIA [None]
  - GENERALISED OEDEMA [None]
